FAERS Safety Report 12410386 (Version 1)
Quarter: 2016Q2

REPORT INFORMATION
  Report Type: Report from Study
  Country: US (occurrence: US)
  Receive Date: 20160527
  Receipt Date: 20160527
  Transmission Date: 20160815
  Serious: No
  Sender: FDA-Public Use
  Company Number: PHEH2016US012556

PATIENT
  Sex: Male

DRUGS (1)
  1. COSENTYX [Suspect]
     Active Substance: SECUKINUMAB
     Indication: PRODUCT USED FOR UNKNOWN INDICATION
     Dosage: UNK UNK, QW
     Route: 065

REACTIONS (5)
  - Eye swelling [Recovering/Resolving]
  - Pruritus generalised [Recovering/Resolving]
  - Dizziness postural [Recovering/Resolving]
  - Drug ineffective [Unknown]
  - Swelling face [Recovering/Resolving]
